FAERS Safety Report 9490925 (Version 1)
Quarter: 2013Q3

REPORT INFORMATION
  Report Type: Spontaneous
  Country: US (occurrence: None)
  Receive Date: 20130828
  Receipt Date: 20130828
  Transmission Date: 20140515
  Serious: Yes (Other)
  Sender: FDA-Public Use
  Company Number: None

PATIENT
  Age: 55 Year
  Sex: Female
  Weight: 106.6 kg

DRUGS (11)
  1. DIAZEPAM [Suspect]
     Indication: JOINT INJURY
     Dosage: STRENGTH: 2MG QUANTITY: 45(2 WEEK SUPPLY) FREQUENCY: EVERY 8HRS-3 PER DAY   MOUTH
     Route: 048
     Dates: start: 20130617
  2. DIAZEPAM [Suspect]
     Indication: BACK INJURY
     Dosage: STRENGTH: 2MG QUANTITY: 45(2 WEEK SUPPLY) FREQUENCY: EVERY 8HRS-3 PER DAY   MOUTH
     Route: 048
     Dates: start: 20130617
  3. DIAZEPAM [Suspect]
     Indication: NECK INJURY
     Dosage: STRENGTH: 2MG QUANTITY: 45(2 WEEK SUPPLY) FREQUENCY: EVERY 8HRS-3 PER DAY   MOUTH
     Route: 048
     Dates: start: 20130617
  4. NORCO [Concomitant]
  5. DILTIAZEM HCL, COATED BEADS [Concomitant]
  6. PRAVASTATIN [Concomitant]
  7. FENOFIBRATE [Concomitant]
  8. POLYETHYLENE GLYCOL 3350, NF POWDER FOR SOLUTION, LAXATIVE [Concomitant]
  9. ASPIRIN [Concomitant]
  10. SUPER STRENGTH MULTI VITAMIN IRON FREE [Concomitant]
  11. OMEGA 3 KRILL OIL [Concomitant]

REACTIONS (1)
  - Product quality issue [None]
